FAERS Safety Report 10751580 (Version 2)
Quarter: 2015Q1

REPORT INFORMATION
  Report Type: Spontaneous
  Country: ZA (occurrence: ZA)
  Receive Date: 20150130
  Receipt Date: 20150324
  Transmission Date: 20150721
  Serious: Yes (Hospitalization)
  Sender: FDA-Public Use
  Company Number: ZA-MUNDIPHARMA DS AND PHARMACOVIGILANCE-GBR-2015-0025110

PATIENT
  Age: 81 Year
  Sex: Male

DRUGS (7)
  1. CELEBREX [Concomitant]
     Active Substance: CELECOXIB
  2. SOVENOR 10 MCG/H [Suspect]
     Active Substance: BUPRENORPHINE HYDROCHLORIDE
     Indication: MUSCULOSKELETAL PAIN
     Dosage: 10 MCG, Q1H
     Route: 062
     Dates: start: 20150106, end: 20150109
  3. MYBULEN [Concomitant]
  4. ADCO-ZOLPIDEM [Concomitant]
     Active Substance: ZOLPIDEM TARTRATE
  5. ARYCOR [Concomitant]
  6. TRAMCET [Concomitant]
     Active Substance: ACETAMINOPHEN\TRAMADOL
  7. SERDEP                             /01011402/ [Concomitant]

REACTIONS (5)
  - Cardiac failure [Recovered/Resolved]
  - Coordination abnormal [Recovered/Resolved]
  - Dry mouth [Unknown]
  - Memory impairment [Recovered/Resolved]
  - Muscular weakness [Unknown]

NARRATIVE: CASE EVENT DATE: 20150109
